FAERS Safety Report 8223566-2 (Version None)
Quarter: 2012Q1

REPORT INFORMATION
  Report Type: 
  Country: None (occurrence: None)
  Receive Date: 20120321
  Receipt Date: 20120315
  Transmission Date: 20120608
  Serious: No
  Sender: FDA-Public Use
  Company Number: US-PFIZER INC-2012068910

PATIENT
  Sex: Female
  Weight: 68 kg

DRUGS (14)
  1. LASIX [Concomitant]
     Dosage: UNK
  2. ALDACTONE [Concomitant]
     Dosage: UNK
  3. LIPITOR [Concomitant]
     Dosage: UNK
  4. PROTONIX [Concomitant]
     Dosage: UNK
  5. TIKOSYN [Suspect]
     Indication: ATRIAL FIBRILLATION
     Dosage: 250 UG, 2X/DAY
     Route: 048
     Dates: start: 20030101
  6. TIKOSYN [Suspect]
     Dosage: 500 UG, 2X/DAY
     Route: 048
  7. SYNTHROID [Concomitant]
     Dosage: UNK
  8. METOLAZONE [Concomitant]
     Dosage: UNK
  9. MAGNESIUM [Concomitant]
     Dosage: UNK
  10. COUMADIN [Concomitant]
     Dosage: UNK
  11. ALTACE [Concomitant]
     Dosage: UNK
  12. COREG [Concomitant]
     Dosage: UNK
  13. POTASSIUM [Concomitant]
     Dosage: UNK
  14. VITAMIN B-12 [Concomitant]
     Dosage: UNK

REACTIONS (1)
  - HYPERTENSION [None]
